FAERS Safety Report 23064314 (Version 2)
Quarter: 2023Q4

REPORT INFORMATION
  Report Type: Spontaneous
  Country: JP (occurrence: JP)
  Receive Date: 20231013
  Receipt Date: 20231118
  Transmission Date: 20240109
  Serious: Yes (Hospitalization, Other)
  Sender: FDA-Public Use
  Company Number: JP-AMGEN-JPNSP2023128356

PATIENT
  Age: 78 Year
  Sex: Male
  Weight: 49.4 kg

DRUGS (12)
  1. EVENITY [Suspect]
     Active Substance: ROMOSOZUMAB-AQQG
     Indication: Osteoporosis
     Dosage: 210 MILLIGRAM, QMO
     Route: 058
     Dates: start: 20200206, end: 20201119
  2. AMLODIPINE [Concomitant]
     Active Substance: AMLODIPINE BESYLATE
     Indication: End stage renal disease
     Dosage: 5 MILLIGRAM, QD (AFTER BREAKFAST)
  3. LOSARTAN POTASSIUM [Concomitant]
     Active Substance: LOSARTAN POTASSIUM
     Indication: End stage renal disease
     Dosage: 25 MILLIGRAM, QD (50 MILLIGRAM, QD (AFTER BREAKFAST))
  4. ASPIRIN [Concomitant]
     Active Substance: ASPIRIN
     Indication: End stage renal disease
     Dosage: 100 MILLIGRAM, QD (AFTER BREAKFAST)
  5. CILNIDIPINE [Concomitant]
     Active Substance: CILNIDIPINE
     Indication: End stage renal disease
     Dosage: 10 MILLIGRAM, QD (AFTER DINNER)
  6. KREMEZIN [Concomitant]
     Active Substance: ACTIVATED CHARCOAL
     Indication: End stage renal disease
     Dosage: 2000 MILLIGRAM, QD (AFTER LUNCH(2 HOURS AFTER LUNCH)
  7. LANTUS [Concomitant]
     Active Substance: INSULIN GLARGINE
     Indication: Type 2 diabetes mellitus
     Dosage: 10 UNIT, QD (MORNING)
  8. RANITIDINE [Concomitant]
     Active Substance: RANITIDINE
     Dosage: 150 MILLIGRAM, QD (AFTER BREAKFAST)
  9. CALCIUM POLYSTYRENE SULFONATE [Concomitant]
     Active Substance: CALCIUM POLYSTYRENE SULFONATE
     Dosage: 5 GRAM
  10. FORTEO [Concomitant]
     Active Substance: TERIPARATIDE
     Dosage: 600 MICROGRAM, QD
     Dates: start: 20180202, end: 20200206
  11. SODIUM PICOSULFATE [Concomitant]
     Active Substance: SODIUM PICOSULFATE
  12. DISOPYRAMIDE [Concomitant]
     Active Substance: DISOPYRAMIDE

REACTIONS (2)
  - Acute myocardial infarction [Recovered/Resolved]
  - Cardiac failure congestive [Unknown]

NARRATIVE: CASE EVENT DATE: 20201223
